FAERS Safety Report 25360092 (Version 1)
Quarter: 2025Q2

REPORT INFORMATION
  Report Type: Spontaneous
  Country: ES (occurrence: ES)
  Receive Date: 20250527
  Receipt Date: 20250527
  Transmission Date: 20250717
  Serious: Yes (Other)
  Sender: AMGEN
  Company Number: ES-AMGEN-ESPSP2025098182

PATIENT

DRUGS (4)
  1. ETANERCEPT [Suspect]
     Active Substance: ETANERCEPT
     Indication: Juvenile idiopathic arthritis
     Route: 065
  2. ADALIMUMAB [Suspect]
     Active Substance: ADALIMUMAB
     Indication: Juvenile idiopathic arthritis
     Route: 065
  3. INFLIXIMAB [Concomitant]
     Active Substance: INFLIXIMAB
     Route: 065
  4. GOLIMUMAB [Concomitant]
     Active Substance: GOLIMUMAB
     Route: 065

REACTIONS (7)
  - Juvenile idiopathic arthritis [Unknown]
  - Neoplasm malignant [Unknown]
  - Skin reaction [Unknown]
  - Laboratory test abnormal [Unknown]
  - Anaphylactic reaction [Unknown]
  - Drug ineffective [Unknown]
  - Infection [Unknown]
